FAERS Safety Report 5845531-2 (Version None)
Quarter: 2008Q3

REPORT INFORMATION
  Report Type: 
  Country: None (occurrence: None)
  Receive Date: 20080814
  Receipt Date: 20080807
  Transmission Date: 20090109
  Serious: Yes (Other)
  Sender: FDA-Public Use
  Company Number: GB-ASTRAZENECA-2008GB01517

PATIENT
  Age: 16 Year
  Sex: Female

DRUGS (1)
  1. SEROQUEL [Suspect]
     Indication: PSYCHOTIC DISORDER
     Route: 048
     Dates: start: 20070201

REACTIONS (3)
  - BLOOD FOLATE INCREASED [None]
  - NEUTROPENIA [None]
  - THYROID FUNCTION TEST ABNORMAL [None]
